FAERS Safety Report 6881781-4 (Version None)
Quarter: 2010Q3

REPORT INFORMATION
  Report Type: 
  Country: None (occurrence: None)
  Receive Date: 20100729
  Receipt Date: 20100720
  Transmission Date: 20110219
  Serious: Yes (Death, Congenital Anomaly)
  Sender: FDA-Public Use
  Company Number: FR-PFIZER INC-2010090793

PATIENT

DRUGS (4)
  1. SERTRALINE HYDROCHLORIDE [Suspect]
     Indication: OBSESSIVE-COMPULSIVE DISORDER
     Dosage: 50 MG, 2X/DAY
     Route: 064
  2. SERTRALINE HYDROCHLORIDE [Suspect]
     Dosage: 50 MG, 1X/DAY
     Route: 064
  3. SERTRALINE HYDROCHLORIDE [Suspect]
     Dosage: 25 MG, 1X/DAY
     Route: 064
  4. SERTRALINE HYDROCHLORIDE [Suspect]
     Dosage: 25 MG, ALTERNATE DAY
     Route: 064

REACTIONS (3)
  - CYTOGENETIC ABNORMALITY [None]
  - DRUG EXPOSURE DURING PREGNANCY [None]
  - SKULL MALFORMATION [None]
